FAERS Safety Report 15933829 (Version 1)
Quarter: 2019Q1

REPORT INFORMATION
  Report Type: Report from Study
  Country: KR (occurrence: KR)
  Receive Date: 20190207
  Receipt Date: 20190207
  Transmission Date: 20190417
  Serious: Yes (Other)
  Sender: FDA-Public Use
  Company Number: KR-BAYER-2019-026769

PATIENT

DRUGS (3)
  1. CLOPIDOGREL [Suspect]
     Active Substance: CLOPIDOGREL BISULFATE
     Indication: ANTIPLATELET THERAPY
     Dosage: 75 MG
  2. ASPIRIN. [Suspect]
     Active Substance: ASPIRIN
     Indication: ANTIPLATELET THERAPY
     Dosage: 100 MG
  3. HEPARIN [Suspect]
     Active Substance: HEPARIN SODIUM
     Dosage: 3000 IU
     Route: 040

REACTIONS (2)
  - Ruptured cerebral aneurysm [None]
  - Labelled drug-drug interaction medication error [None]
